FAERS Safety Report 6937710-8 (Version None)
Quarter: 2010Q3

REPORT INFORMATION
  Report Type: 
  Country: None (occurrence: None)
  Receive Date: 20100820
  Receipt Date: 20100820
  Transmission Date: 20110219
  Serious: Yes (Hospitalization, Other)
  Sender: FDA-Public Use
  Company Number: None

PATIENT
  Age: 47 Year
  Sex: Female
  Weight: 58.2 kg

DRUGS (2)
  1. CYMBALTA [Suspect]
     Indication: DEPRESSION
     Dosage: 30MG ONCE DAILY PO (APPROXIMATELY 3-4 WEEKS)
     Route: 048
  2. CIPROFLOXACIN [Suspect]
     Indication: GASTROINTESTINAL INFECTION
     Dosage: 500MG TWICE DAILY PO
     Route: 048

REACTIONS (12)
  - AMNESIA [None]
  - ANGER [None]
  - DECREASED APPETITE [None]
  - DIARRHOEA [None]
  - DRUG INTERACTION [None]
  - FATIGUE [None]
  - GASTROENTERITIS SALMONELLA [None]
  - HAEMATOMA [None]
  - HUNGER [None]
  - INSOMNIA [None]
  - SKIN BURNING SENSATION [None]
  - WEIGHT DECREASED [None]
